FAERS Safety Report 8151417-3 (Version None)
Quarter: 2012Q1

REPORT INFORMATION
  Report Type: 
  Country: None (occurrence: None)
  Receive Date: 20120220
  Receipt Date: 20120206
  Transmission Date: 20120608
  Serious: Yes (Other)
  Sender: FDA-Public Use
  Company Number: US-ROCHE-1037578

PATIENT
  Sex: Female

DRUGS (1)
  1. KLONOPIN [Suspect]
     Indication: OPEN ANGLE GLAUCOMA
     Dosage: 2 TABLETS

REACTIONS (7)
  - BLINDNESS UNILATERAL [None]
  - GAIT DISTURBANCE [None]
  - DIZZINESS [None]
  - COORDINATION ABNORMAL [None]
  - NEUROPATHY PERIPHERAL [None]
  - OPEN ANGLE GLAUCOMA [None]
  - ALOPECIA [None]
